FAERS Safety Report 7878686-9 (Version None)
Quarter: 2011Q4

REPORT INFORMATION
  Report Type: 
  Country: None (occurrence: None)
  Receive Date: 20111101
  Receipt Date: 20111020
  Transmission Date: 20120403
  Serious: Yes (Other)
  Sender: FDA-Public Use
  Company Number: US-JNJFOC-20111010113

PATIENT
  Age: 16 Year
  Sex: Female

DRUGS (1)
  1. REMICADE [Suspect]
     Indication: CROHN'S DISEASE
     Dosage: 3RD INDUCTION DOSE
     Route: 042
     Dates: start: 20110101, end: 20110101

REACTIONS (2)
  - INFUSION RELATED REACTION [None]
  - ANAPHYLACTIC REACTION [None]
